FAERS Safety Report 20232846 (Version 1)
Quarter: 2021Q4

REPORT INFORMATION
  Report Type: Spontaneous
  Country: CA (occurrence: CA)
  Receive Date: 20211227
  Receipt Date: 20211227
  Transmission Date: 20220303
  Serious: Yes (Other)
  Sender: FDA-Public Use
  Company Number: CA-PFIZER INC-202101133797

PATIENT
  Age: 53 Year
  Sex: Female
  Weight: 68 kg

DRUGS (3)
  1. XELJANZ [Suspect]
     Active Substance: TOFACITINIB CITRATE
     Indication: Rheumatoid arthritis
     Dosage: 5 MG, 2X/DAY
     Route: 048
     Dates: start: 20211118
  2. LEFLUNOMIDE [Concomitant]
     Active Substance: LEFLUNOMIDE
     Dosage: 1 DF (NO DOSAGE INFORMATION AVAILABLE)
  3. SYNTHROID [Concomitant]
     Active Substance: LEVOTHYROXINE SODIUM
     Dosage: 1 DF (NO DOSAGE INFORMATION AVAILABLE)
     Route: 048

REACTIONS (1)
  - Neoplasm [Unknown]
